FAERS Safety Report 9751700 (Version 2)
Quarter: 2013Q4

REPORT INFORMATION
  Report Type: Spontaneous
  Country: IT (occurrence: IT)
  Receive Date: 20131213
  Receipt Date: 20131217
  Transmission Date: 20140711
  Serious: Yes (Other)
  Sender: FDA-Public Use
  Company Number: IT-RANBAXY-2013RR-76112

PATIENT
  Age: 39 Year
  Sex: Male

DRUGS (1)
  1. AMOXICILLIN [Suspect]
     Indication: NASOPHARYNGITIS
     Dosage: 500 MG, COMPLETE
     Route: 048
     Dates: start: 20131126, end: 20131126

REACTIONS (2)
  - Pruritus [Recovered/Resolved]
  - Generalised erythema [Recovered/Resolved]
